FAERS Safety Report 13177277 (Version 2)
Quarter: 2017Q3

REPORT INFORMATION
  Report Type: Report from Study
  Country: US (occurrence: US)
  Receive Date: 20170201
  Receipt Date: 20170731
  Transmission Date: 20171127
  Serious: No
  Sender: FDA-Public Use
  Company Number: US-EXELIXIS-CABO-16007567

PATIENT
  Sex: Female

DRUGS (1)
  1. CABOMETYX [Suspect]
     Active Substance: CABOZANTINIB S-MALATE
     Indication: RENAL CELL CARCINOMA

REACTIONS (5)
  - Infected seroma [Unknown]
  - Arthropod bite [Unknown]
  - Peripheral swelling [Recovering/Resolving]
  - Retching [Unknown]
  - Wound dehiscence [Unknown]
